FAERS Safety Report 9448419 (Version 1)
Quarter: 2013Q3

REPORT INFORMATION
  Report Type: Spontaneous
  Country: US (occurrence: US)
  Receive Date: 20130808
  Receipt Date: 20130808
  Transmission Date: 20140515
  Serious: Yes (Other)
  Sender: FDA-Public Use
  Company Number: PHHY2013US083079

PATIENT
  Age: 21 Year
  Sex: Male

DRUGS (3)
  1. MINOCYCLINE [Suspect]
     Indication: ACNE
     Dosage: 100 MG, BID
  2. DOXYCYCLINE [Suspect]
     Indication: ACNE
  3. RETIN A [Suspect]

REACTIONS (10)
  - Vasculitis [Recovered/Resolved]
  - Fatigue [Recovered/Resolved]
  - Arthralgia [Recovered/Resolved]
  - Weight decreased [Recovered/Resolved]
  - Cyanosis [Recovered/Resolved]
  - Testicular pain [Recovered/Resolved]
  - Genital lesion [Recovered/Resolved]
  - Joint stiffness [Recovered/Resolved]
  - Joint swelling [Recovered/Resolved]
  - Drug ineffective [Unknown]
